FAERS Safety Report 7845807 (Version 2)
Quarter: 2015Q2

REPORT INFORMATION
  Report Type: Report from Study
  Country: GB (occurrence: GB)
  Receive Date: 20110308
  Receipt Date: 20150511
  Transmission Date: 20150821
  Serious: Yes (Other)
  Sender: FDA-Public Use
  Company Number: GB-ROCHE-763049

PATIENT
  Age: 58 Year
  Sex: Male
  Weight: 111 kg

DRUGS (8)
  1. EPIRUBICIN [Suspect]
     Active Substance: EPIRUBICIN
     Indication: ADENOCARCINOMA GASTRIC
     Dosage: DATE OF MOST RECENT DOSE ADMINISTRATION: 05 OCTOBER 2010
     Route: 042
     Dates: start: 20100909
  2. LANSOPRAZOLE. [Concomitant]
     Active Substance: LANSOPRAZOLE
     Route: 048
  3. CAPECITABINE. [Suspect]
     Active Substance: CAPECITABINE
     Indication: ADENOCARCINOMA GASTRIC
     Dosage: DATE OF MOST RECENT DOSE ADMINISTRATION: 19 OCTOBER 2010
     Route: 048
  4. CISPLATIN. [Suspect]
     Active Substance: CISPLATIN
     Indication: ADENOCARCINOMA GASTRIC
     Dosage: DATE OF MOST RECENT DOSE ADMINISTRATION: 09 SEPTEMBER 2010
     Route: 042
     Dates: start: 20100909
  5. SIMVASTATIN. [Concomitant]
     Active Substance: SIMVASTATIN
     Route: 048
  6. SERTRALINE [Concomitant]
     Active Substance: SERTRALINE HYDROCHLORIDE
     Route: 048
  7. BEVACIZUMAB [Suspect]
     Active Substance: BEVACIZUMAB
     Indication: ADENOCARCINOMA GASTRIC
     Dosage: DATE OF MOST RECENT DOSE ADMINISTRATION: 05 OCTOBER 2010
     Route: 042
  8. LISINOPRIL. [Concomitant]
     Active Substance: LISINOPRIL
     Route: 048

REACTIONS (1)
  - Impaired healing [Recovered/Resolved]

NARRATIVE: CASE EVENT DATE: 20101004
